FAERS Safety Report 5657748-0 (Version None)
Quarter: 2008Q1

REPORT INFORMATION
  Report Type: 
  Country: None (occurrence: None)
  Receive Date: 20080305
  Receipt Date: 20080218
  Transmission Date: 20080703
  Serious: Yes (Hospitalization)
  Sender: FDA-Public Use
  Company Number: 2008S1002755

PATIENT
  Age: 86 Year
  Sex: Female

DRUGS (3)
  1. IBUPROFEN (IBUPROFEN) [Suspect]
     Indication: DRUG USE FOR UNKNOWN INDICATION
     Dosage: 400 MG; 10; ORAL
     Route: 048
  2. CALCIUM CARBONATE (CALCIUM CARBONATE) [Suspect]
     Indication: DRUG USE FOR UNKNOWN INDICATION
     Dosage: 600 MG; 7; ORAL
     Route: 048
  3. CHLORPROTHIXEN /00012102/ (CHLORPROTHIXENE HYDROCHLORIDE) [Suspect]
     Indication: DRUG USE FOR UNKNOWN INDICATION
     Dosage: 50 MG; 50; ORAL
     Route: 048

REACTIONS (3)
  - FATIGUE [None]
  - HYPOTENSION [None]
  - MULTIPLE DRUG OVERDOSE INTENTIONAL [None]
